FAERS Safety Report 16597004 (Version 1)
Quarter: 2019Q3

REPORT INFORMATION
  Report Type: Spontaneous
  Country: US (occurrence: US)
  Receive Date: 20190719
  Receipt Date: 20190719
  Transmission Date: 20191004
  Serious: Yes (Other)
  Sender: FDA-Public Use
  Company Number: US-ASTRAZENECA-2019SF01877

PATIENT
  Age: 60 Year
  Sex: Male

DRUGS (2)
  1. BRILINTA [Suspect]
     Active Substance: TICAGRELOR
     Indication: CARDIAC ARREST
     Dosage: UNKNOWN
     Route: 048
     Dates: start: 20190223
  2. BRILINTA [Suspect]
     Active Substance: TICAGRELOR
     Indication: CARDIAC ARREST
     Dosage: UNKNOWN
     Route: 048

REACTIONS (1)
  - Gastric ulcer haemorrhage [Unknown]

NARRATIVE: CASE EVENT DATE: 20190419
